FAERS Safety Report 18944961 (Version 2)
Quarter: 2021Q1

REPORT INFORMATION
  Report Type: Spontaneous
  Country: US (occurrence: US)
  Receive Date: 20210226
  Receipt Date: 20210302
  Transmission Date: 20210420
  Serious: Yes (Other)
  Sender: FDA-Public Use
  Company Number: US-GLAXOSMITHKLINE-US2021052634

PATIENT
  Age: 76 Year
  Sex: Male

DRUGS (1)
  1. FLONASE ALLERGY RELIEF [Suspect]
     Active Substance: FLUTICASONE PROPIONATE
     Indication: PRODUCT USED FOR UNKNOWN INDICATION
     Dosage: UNK

REACTIONS (7)
  - Diabetes mellitus [Unknown]
  - Immune system disorder [Unknown]
  - Expired product administered [Unknown]
  - Product complaint [Unknown]
  - Hypertension [Unknown]
  - Nasal congestion [Unknown]
  - Packaging design issue [Unknown]
